FAERS Safety Report 14191292 (Version 3)
Quarter: 2018Q1

REPORT INFORMATION
  Report Type: Report from Study
  Country: US (occurrence: US)
  Receive Date: 20171115
  Receipt Date: 20180108
  Transmission Date: 20180508
  Serious: Yes (Death, Hospitalization)
  Sender: FDA-Public Use
  Company Number: US-PFIZER INC-2017159000

PATIENT
  Age: 20 Year
  Sex: Female
  Weight: 54.2 kg

DRUGS (22)
  1. CYCLOBENZAPRINE. [Concomitant]
     Active Substance: CYCLOBENZAPRINE
     Dosage: UNK
     Dates: start: 20170111, end: 20170324
  2. PEPCID [Concomitant]
     Active Substance: FAMOTIDINE
     Dosage: UNK
     Dates: start: 20170303, end: 20170324
  3. MIRALAX [Concomitant]
     Active Substance: POLYETHYLENE GLYCOL 3350
     Dosage: UNK
     Dates: start: 20170224, end: 20170324
  4. PROCHLORPERAZINE. [Concomitant]
     Active Substance: PROCHLORPERAZINE
     Dosage: UNK
     Dates: start: 20170224, end: 20170324
  5. DILAUDID [Concomitant]
     Active Substance: HYDROMORPHONE HYDROCHLORIDE
     Dosage: UNK
     Dates: start: 20170227, end: 20170324
  6. MORPHINE [Concomitant]
     Active Substance: MORPHINE
     Dosage: UNK
     Dates: start: 20170224, end: 20170324
  7. DECITABINE. [Concomitant]
     Active Substance: DECITABINE
     Dosage: UNK
     Dates: start: 20170223, end: 20170227
  8. MYLOTARG [Suspect]
     Active Substance: GEMTUZUMAB OZOGAMICIN
     Indication: ACUTE MYELOID LEUKAEMIA RECURRENT
     Dosage: 4.62 MG, UNK
     Route: 042
     Dates: start: 20170228, end: 20170303
  9. MEROPENEM. [Suspect]
     Active Substance: MEROPENEM
     Dosage: 500 Q6HRS
     Route: 042
     Dates: start: 20170316, end: 20170319
  10. POSACONAZOLE [Concomitant]
     Active Substance: POSACONAZOLE
     Indication: ANTIFUNGAL TREATMENT
     Dosage: 400 MG, DAILY
     Route: 048
     Dates: start: 20170224, end: 20170315
  11. PROTONIX [Concomitant]
     Active Substance: PANTOPRAZOLE SODIUM
     Dosage: UNK
     Dates: start: 20170208, end: 20170324
  12. LEVAQUIN [Suspect]
     Active Substance: LEVOFLOXACIN
     Indication: BACTERAEMIA
     Dosage: 500 MG, Q24HRS
     Route: 048
     Dates: start: 20170214, end: 20170315
  13. SENNA /00142201/ [Concomitant]
     Active Substance: SENNA LEAF
     Dosage: UNK
     Dates: start: 20170224, end: 20170324
  14. ZOFRAN [Concomitant]
     Active Substance: ONDANSETRON HYDROCHLORIDE
     Dosage: UNK
     Dates: start: 20161205, end: 20170324
  15. ATIVAN [Concomitant]
     Active Substance: LORAZEPAM
     Dosage: UNK
     Dates: start: 20170111, end: 20170315
  16. MEROPENEM. [Suspect]
     Active Substance: MEROPENEM
     Indication: BACTERAEMIA
     Dosage: 500 MG, Q6HRS
     Route: 042
     Dates: start: 20170210, end: 20170214
  17. LEVAQUIN [Suspect]
     Active Substance: LEVOFLOXACIN
     Dosage: 500 Q24HRS
     Dates: start: 20170321, end: 20170323
  18. PENTAMIDINE [Concomitant]
     Active Substance: PENTAMIDINE
     Indication: ANTIBIOTIC THERAPY
     Dosage: 300 MG, MONTHLY
     Route: 055
     Dates: start: 20170202, end: 20170324
  19. MORPHINE [Concomitant]
     Active Substance: MORPHINE
     Dosage: UNK
     Dates: start: 20170313, end: 20170324
  20. ACYCLOVIR /00587301/ [Concomitant]
     Active Substance: ACYCLOVIR
     Dosage: UNK
     Dates: start: 20161216, end: 20170324
  21. LEXAPRO [Concomitant]
     Active Substance: ESCITALOPRAM OXALATE
     Dosage: UNK
     Dates: start: 20161230, end: 20170324
  22. CRYSELLE [Concomitant]
     Active Substance: ETHINYL ESTRADIOL\NORGESTREL
     Dosage: UNK
     Dates: start: 20170112, end: 20170324

REACTIONS (4)
  - Clostridium difficile colitis [Fatal]
  - Neoplasm progression [Fatal]
  - Enterococcal bacteraemia [Not Recovered/Not Resolved]
  - Streptococcal bacteraemia [Not Recovered/Not Resolved]

NARRATIVE: CASE EVENT DATE: 20170315
